FAERS Safety Report 22902753 (Version 5)
Quarter: 2025Q3

REPORT INFORMATION
  Report Type: Spontaneous
  Country: US (occurrence: US)
  Receive Date: 20230904
  Receipt Date: 20250829
  Transmission Date: 20251021
  Serious: No
  Sender: PFIZER
  Company Number: US-PFIZER INC-202300290763

PATIENT
  Age: 37 Year
  Sex: Male
  Weight: 74.84 kg

DRUGS (5)
  1. SOMATROPIN [Suspect]
     Active Substance: SOMATROPIN
     Indication: Hypopituitarism
     Dosage: 0.2 MG, DAILY
     Route: 058
     Dates: start: 202305
  2. SOMATROPIN [Suspect]
     Active Substance: SOMATROPIN
     Indication: Growth hormone deficiency
  3. SOMATROPIN [Suspect]
     Active Substance: SOMATROPIN
     Indication: Noonan syndrome
  4. SOMATROPIN [Suspect]
     Active Substance: SOMATROPIN
     Indication: Short stature
  5. RETINOL [Concomitant]
     Active Substance: RETINOL

REACTIONS (2)
  - Acne [Not Recovered/Not Resolved]
  - Seborrhoea [Unknown]
